FAERS Safety Report 9814019 (Version 1)
Quarter: 2014Q1

REPORT INFORMATION
  Report Type: Spontaneous
  Country: US (occurrence: US)
  Receive Date: 20140113
  Receipt Date: 20140113
  Transmission Date: 20141002
  Serious: Yes (Death)
  Sender: FDA-Public Use
  Company Number: US-PFIZER INC-2014006159

PATIENT
  Age: 49 Year
  Sex: Female

DRUGS (4)
  1. ZIPRASIDONE HCL [Suspect]
     Dosage: UNK
     Route: 048
  2. QUETIAPINE [Suspect]
     Dosage: UNK
     Route: 048
  3. ESZOPICLONE [Suspect]
     Dosage: UNK
     Route: 048
  4. CLONAZEPAM [Suspect]
     Dosage: UNK
     Route: 048

REACTIONS (1)
  - Completed suicide [Fatal]
